FAERS Safety Report 13721457 (Version 1)
Quarter: 2017Q3

REPORT INFORMATION
  Report Type: Spontaneous
  Country: JP (occurrence: JP)
  Receive Date: 20170706
  Receipt Date: 20170706
  Transmission Date: 20171127
  Serious: No
  Sender: FDA-Public Use
  Company Number: JP-LUPIN PHARMACEUTICALS INC.-2017-01526

PATIENT
  Age: 30 Year
  Sex: Female

DRUGS (15)
  1. ESCITALOPRAM [Concomitant]
     Active Substance: ESCITALOPRAM OXALATE
     Indication: BORDERLINE PERSONALITY DISORDER
     Dosage: 10 MG, UNK
  2. NITRAZEPAM [Concomitant]
     Active Substance: NITRAZEPAM
     Indication: BORDERLINE PERSONALITY DISORDER
     Dosage: 10 MG, UNK
  3. DIAZEPAM. [Concomitant]
     Active Substance: DIAZEPAM
     Dosage: 6 MG, UNK
  4. OLANZAPINE. [Concomitant]
     Active Substance: OLANZAPINE
     Indication: BORDERLINE PERSONALITY DISORDER
     Dosage: 5 MG, UNK
  5. DULOXETINE. [Suspect]
     Active Substance: DULOXETINE
     Dosage: 40 MG, UNK
  6. DULOXETINE. [Suspect]
     Active Substance: DULOXETINE
     Dosage: 20 MG, 4 TABLETS
  7. DULOXETINE. [Suspect]
     Active Substance: DULOXETINE
     Indication: BORDERLINE PERSONALITY DISORDER
     Dosage: 20 MG, UNK
  8. NITRAZEPAM [Concomitant]
     Active Substance: NITRAZEPAM
     Dosage: 5 MG, UNK
  9. CODEINE PHOSPHATE [Suspect]
     Active Substance: CODEINE PHOSPHATE
     Indication: VIRAL UPPER RESPIRATORY TRACT INFECTION
     Dosage: 40 MG
  10. BUPROPION. [Suspect]
     Active Substance: BUPROPION
     Indication: SMOKING CESSATION THERAPY
     Dosage: 40 TABLETS
  11. IBUPROFEN. [Suspect]
     Active Substance: IBUPROFEN
     Indication: VIRAL UPPER RESPIRATORY TRACT INFECTION
     Dosage: 720 MG
  12. TRIAZOLAM. [Concomitant]
     Active Substance: TRIAZOLAM
     Indication: BORDERLINE PERSONALITY DISORDER
     Dosage: 0.5 MG, UNK
  13. ASPIRIN. [Suspect]
     Active Substance: ASPIRIN
     Indication: PRODUCT USED FOR UNKNOWN INDICATION
     Dosage: 4 TABLETS OF 1,320 MG
  14. CAFFEINE. [Suspect]
     Active Substance: CAFFEINE
     Indication: VIRAL UPPER RESPIRATORY TRACT INFECTION
     Dosage: 125 MG
  15. DIAZEPAM. [Concomitant]
     Active Substance: DIAZEPAM
     Indication: BORDERLINE PERSONALITY DISORDER
     Dosage: 2 MG, UNK

REACTIONS (1)
  - Overdose [Unknown]
